FAERS Safety Report 20225544 (Version 4)
Quarter: 2024Q4

REPORT INFORMATION
  Report Type: Spontaneous
  Country: US (occurrence: US)
  Receive Date: 20211224
  Receipt Date: 20241015
  Transmission Date: 20250115
  Serious: Yes (Hospitalization, Other)
  Sender: NOVARTIS
  Company Number: US-NOVARTISTESTPH-NVSC2021US295245

PATIENT
  Sex: Female

DRUGS (1)
  1. MEKINIST [Suspect]
     Active Substance: TRAMETINIB DIMETHYL SULFOXIDE
     Indication: Chylothorax
     Dosage: 2 MG, QD
     Route: 048
     Dates: start: 20210727

REACTIONS (3)
  - Fall [Unknown]
  - Spinal fracture [Unknown]
  - Skin irritation [Unknown]
